FAERS Safety Report 5704227-8 (Version None)
Quarter: 2008Q2

REPORT INFORMATION
  Report Type: 
  Country: None (occurrence: None)
  Receive Date: 20080409
  Receipt Date: 20080328
  Transmission Date: 20081010
  Serious: Yes (Other)
  Sender: FDA-Public Use
  Company Number: 100#02#2008-01727

PATIENT
  Age: 35 Year
  Sex: Female

DRUGS (5)
  1. SUMAMED (500 MILLIGRAM, TABLETS) (AZITHROMYCIN) [Suspect]
     Indication: UPPER RESPIRATORY TRACT INFECTION
     Dosage: 500 MG ONCE DAILY, ORAL
     Route: 048
     Dates: start: 20080326, end: 20080327
  2. ERESPAL (TABLETS) (FENSPIRIDE) [Concomitant]
  3. MACROPEN (MIDECAMYCIN) [Concomitant]
  4. ASPIRIN (500 MILLIGRAM, TABLETS) (ACETYLSALICYLIC ACID) [Concomitant]
  5. ANALGIN (500 MILLIGRAM, TABLETS) (METAMIZOLE) [Concomitant]

REACTIONS (13)
  - ABDOMINAL PAIN UPPER [None]
  - DECREASED APPETITE [None]
  - DIARRHOEA [None]
  - DRY MOUTH [None]
  - DRY SKIN [None]
  - FORMICATION [None]
  - LACRIMATION INCREASED [None]
  - MENORRHAGIA [None]
  - PALPITATIONS [None]
  - PHOTOPHOBIA [None]
  - PYREXIA [None]
  - RASH PRURITIC [None]
  - SOMNOLENCE [None]
